FAERS Safety Report 6492647-6 (Version None)
Quarter: 2009Q4

REPORT INFORMATION
  Report Type: 
  Country: None (occurrence: None)
  Receive Date: 20091214
  Receipt Date: 20091112
  Transmission Date: 20100525
  Serious: Yes (Hospitalization)
  Sender: FDA-Public Use
  Company Number: FR-SANOFI-AVENTIS-2009SA001556

PATIENT
  Age: 86 Year
  Sex: Female

DRUGS (4)
  1. PLAVIX [Suspect]
     Route: 048
     Dates: end: 20090815
  2. HEMIGOXINE NATIVELLE [Concomitant]
     Route: 048
  3. SERESTA [Concomitant]
     Route: 048
  4. TAHOR [Concomitant]
     Route: 048

REACTIONS (4)
  - DIARRHOEA [None]
  - HIATUS HERNIA [None]
  - MICROCYTIC ANAEMIA [None]
  - VOMITING [None]
